FAERS Safety Report 20739579 (Version 1)
Quarter: 2022Q2

REPORT INFORMATION
  Report Type: Spontaneous
  Country: US (occurrence: US)
  Receive Date: 20220422
  Receipt Date: 20220422
  Transmission Date: 20220721
  Serious: Yes (Other)
  Sender: FDA-Public Use
  Company Number: US-MYLANLABS-2022M1028942

PATIENT
  Age: 61 Year
  Sex: Female

DRUGS (5)
  1. GEMCITABINE [Suspect]
     Active Substance: GEMCITABINE
     Indication: Uterine neoplasm
     Dosage: UNK
     Route: 065
  2. DOCETAXEL [Suspect]
     Active Substance: DOCETAXEL
     Indication: Uterine neoplasm
     Dosage: UNK
     Route: 065
  3. DOXORUBICIN [Suspect]
     Active Substance: DOXORUBICIN
     Indication: Uterine neoplasm
     Dosage: UNK, CYCLE
     Route: 065
  4. CERITINIB [Concomitant]
     Active Substance: CERITINIB
     Indication: Uterine neoplasm
     Dosage: UNK
     Route: 065
  5. CRIZOTINIB [Concomitant]
     Active Substance: CRIZOTINIB
     Indication: Uterine neoplasm
     Dosage: UNK
     Route: 065

REACTIONS (1)
  - Drug ineffective [Unknown]
